FAERS Safety Report 9431228 (Version 1)
Quarter: 2013Q3

REPORT INFORMATION
  Report Type: Spontaneous
  Country: DK (occurrence: DK)
  Receive Date: 20130730
  Receipt Date: 20130730
  Transmission Date: 20140515
  Serious: Yes (Other)
  Sender: FDA-Public Use
  Company Number: DK-BAXTER-2013BAX027746

PATIENT
  Age: 41 Year
  Sex: Female

DRUGS (7)
  1. HOLOXAN [Suspect]
     Indication: EWING^S SARCOMA
     Route: 065
  2. DOXORUBICIN /00330902/ [Suspect]
     Indication: EWING^S SARCOMA
     Route: 065
  3. ETOPOSIDE /00511902/ [Suspect]
     Indication: EWING^S SARCOMA
     Route: 065
  4. PREDNISOLONE /00016202/ [Suspect]
     Indication: PRODUCT USED FOR UNKNOWN INDICATION
     Route: 065
  5. MIRTAZAPINE [Suspect]
     Indication: PRODUCT USED FOR UNKNOWN INDICATION
     Route: 065
  6. APO FLUCONAZOLE ONE [Interacting]
     Indication: ORAL CANDIDIASIS
     Route: 065
  7. VINCRISTINE /00078802/ [Interacting]
     Indication: EWING^S SARCOMA
     Route: 065

REACTIONS (5)
  - Renal injury [Unknown]
  - Mucosal inflammation [Unknown]
  - Bone marrow failure [Unknown]
  - Neurotoxicity [Recovering/Resolving]
  - Drug interaction [Recovering/Resolving]
